FAERS Safety Report 5926618-2 (Version None)
Quarter: 2008Q4

REPORT INFORMATION
  Report Type: 
  Country: None (occurrence: None)
  Receive Date: 20081022
  Receipt Date: 20081016
  Transmission Date: 20090506
  Serious: Yes (Hospitalization)
  Sender: FDA-Public Use
  Company Number: B0536683A

PATIENT
  Age: 1 Year
  Sex: Female
  Weight: 10.2 kg

DRUGS (1)
  1. CLAVAMOX [Suspect]
     Indication: OTITIS MEDIA
     Dosage: 48.2MGK TWICE PER DAY
     Route: 048
     Dates: start: 20080507, end: 20080508

REACTIONS (5)
  - ALANINE AMINOTRANSFERASE INCREASED [None]
  - ASPARTATE AMINOTRANSFERASE INCREASED [None]
  - BLOOD LACTATE DEHYDROGENASE INCREASED [None]
  - HEPATIC FUNCTION ABNORMAL [None]
  - LIVER DISORDER [None]
